FAERS Safety Report 20298624 (Version 1)
Quarter: 2022Q1

REPORT INFORMATION
  Report Type: Spontaneous
  Country: US (occurrence: None)
  Receive Date: 20220104
  Receipt Date: 20220104
  Transmission Date: 20220424
  Serious: Yes (Hospitalization)
  Sender: FDA-Public Use
  Company Number: None

PATIENT
  Age: 42 Year
  Sex: Male

DRUGS (8)
  1. ADVATE [Suspect]
     Active Substance: ANTIHEMOPHILIC FACTOR, HUMAN RECOMBINANT
  2. ADVATE [Concomitant]
  3. HEPARIN LOCK FLUSH [Concomitant]
  4. MONOJECT PHARMA GRADE FLU [Concomitant]
  5. NORMAL SALINE FLUSH [Concomitant]
  6. NORMAL SALINE I.V. FLUSH [Concomitant]
  7. SALINE FLUSH [Concomitant]
  8. SODIUM CHLORIDE FLUSH [Concomitant]

REACTIONS (3)
  - Internal haemorrhage [None]
  - Dehydration [None]
  - Post procedural haemorrhage [None]

NARRATIVE: CASE EVENT DATE: 20211214
